FAERS Safety Report 9881626 (Version 1)
Quarter: 2014Q1

REPORT INFORMATION
  Report Type: Spontaneous
  Country: FR (occurrence: FR)
  Receive Date: 20140207
  Receipt Date: 20140207
  Transmission Date: 20141002
  Serious: Yes (Hospitalization, Other)
  Sender: FDA-Public Use
  Company Number: FR-PFIZER INC-2014031561

PATIENT
  Age: 73 Year
  Sex: Male

DRUGS (5)
  1. NEURONTIN [Suspect]
     Dosage: 600 MG, 3X/DAY
     Route: 048
     Dates: start: 20131022
  2. TARGOCID [Concomitant]
     Dosage: 400 MG, 2X/DAY
     Route: 042
     Dates: start: 20131023, end: 20131103
  3. PIPERACILLIN/TAZOBACTAM [Concomitant]
     Dosage: 1 DF, 3X/DAY
     Route: 042
     Dates: start: 20131023, end: 20131105
  4. LOVENOX [Concomitant]
     Dosage: 4000 IU, 1X/DAY
     Dates: start: 20131022
  5. LASILIX [Concomitant]
     Dosage: UNK
     Route: 042
     Dates: start: 20131022

REACTIONS (6)
  - Metabolic encephalopathy [Recovered/Resolved]
  - Urinary tract infection [Unknown]
  - Hypocalcaemia [Unknown]
  - Blood parathyroid hormone abnormal [Unknown]
  - Cardiac failure [Recovered/Resolved with Sequelae]
  - Anaemia [Unknown]
